FAERS Safety Report 11700617 (Version 1)
Quarter: 2015Q4

REPORT INFORMATION
  Report Type: Spontaneous
  Country: US (occurrence: None)
  Receive Date: 20151104
  Receipt Date: 20151104
  Transmission Date: 20160304
  Serious: No
  Sender: FDA-Public Use
  Company Number: None

PATIENT
  Age: 63 Year
  Sex: Female
  Weight: 63.5 kg

DRUGS (1)
  1. NEOSPORIN [Suspect]
     Active Substance: BACITRACIN ZINC\NEOMYCIN SULFATE\POLYMYXIN B SULFATE
     Indication: SCRATCH
     Dosage: APPLY SMALL AMOUNT?SMEAR IN PALM OF LEFT HAND - BECAUSE I DIDN^T WANT TO USE THAT MUCH
     Dates: start: 20151016, end: 20151016

REACTIONS (5)
  - Application site pain [None]
  - Drug hypersensitivity [None]
  - Application site pruritus [None]
  - Urticaria [None]
  - Loss of consciousness [None]

NARRATIVE: CASE EVENT DATE: 20151016
